FAERS Safety Report 6902243-1 (Version None)
Quarter: 2010Q3

REPORT INFORMATION
  Report Type: 
  Country: None (occurrence: None)
  Receive Date: 20100803
  Receipt Date: 20080504
  Transmission Date: 20110219
  Serious: No
  Sender: FDA-Public Use
  Company Number: US-PFIZER INC-2008039322

PATIENT
  Sex: Female
  Weight: 85 kg

DRUGS (20)
  1. LYRICA [Suspect]
     Indication: NEURALGIA
     Route: 048
  2. LYRICA [Suspect]
     Indication: BACK PAIN
  3. CHANTIX [Suspect]
     Indication: SMOKING CESSATION THERAPY
     Route: 048
     Dates: start: 20080415
  4. NORVASC [Concomitant]
  5. TOPROL-XL [Concomitant]
  6. IMDUR [Concomitant]
  7. LISINOPRIL [Concomitant]
  8. ZESTRIL [Concomitant]
  9. MONTELUKAST SODIUM [Concomitant]
  10. OTHER RESPIRATORY SYSTEM PRODUCTS [Concomitant]
  11. FIORINAL [Concomitant]
  12. ATIVAN [Concomitant]
  13. SERAX [Concomitant]
  14. ACETYLSALICYLIC ACID SRT [Concomitant]
  15. CALCIUM [Concomitant]
  16. MAGNESIUM [Concomitant]
  17. VITAMIN TAB [Concomitant]
  18. COLACE [Concomitant]
  19. OXYCODONE [Concomitant]
  20. LAXATIVES [Concomitant]

REACTIONS (4)
  - CONFUSIONAL STATE [None]
  - FATIGUE [None]
  - HEADACHE [None]
  - MEMORY IMPAIRMENT [None]
